FAERS Safety Report 5984449-1 (Version None)
Quarter: 2008Q4

REPORT INFORMATION
  Report Type: 
  Country: None (occurrence: None)
  Receive Date: 20081208
  Receipt Date: 20080912
  Transmission Date: 20090506
  Serious: No
  Sender: FDA-Public Use
  Company Number: US-AMGEN-KDL307677

PATIENT
  Sex: Female

DRUGS (1)
  1. ENBREL [Suspect]
     Indication: ANKYLOSING SPONDYLITIS
     Route: 058
     Dates: start: 20050401

REACTIONS (5)
  - BACK PAIN [None]
  - EAR PAIN [None]
  - PAIN IN JAW [None]
  - SINUSITIS [None]
  - TOOTH INFECTION [None]
